FAERS Safety Report 9800579 (Version 1)
Quarter: 2014Q1

REPORT INFORMATION
  Report Type: Spontaneous
  Country: US (occurrence: US)
  Receive Date: 20140107
  Receipt Date: 20140107
  Transmission Date: 20141002
  Serious: No
  Sender: FDA-Public Use
  Company Number: US-009507513-1401USA001653

PATIENT
  Age: 32 Year
  Sex: Female
  Weight: 81.63 kg

DRUGS (3)
  1. NEXPLANON [Suspect]
     Indication: CONTRACEPTION
     Dosage: 1 ROD EVERY 3 YEARS
     Route: 059
     Dates: start: 20120712
  2. NEXPLANON [Suspect]
     Indication: MENSTRUATION IRREGULAR
  3. ZOLOF [Concomitant]
     Dosage: 50 MG

REACTIONS (1)
  - Menstruation irregular [Unknown]
